FAERS Safety Report 15651992 (Version 2)
Quarter: 2018Q4

REPORT INFORMATION
  Report Type: Spontaneous
  Country: JP (occurrence: JP)
  Receive Date: 20181123
  Receipt Date: 20181206
  Transmission Date: 20190205
  Serious: Yes (Hospitalization)
  Sender: FDA-Public Use
  Company Number: JP-B.I. PHARMACEUTICALS,INC./RIDGEFIELD-2018-NB-005606

PATIENT
  Age: 9 Decade
  Sex: Male

DRUGS (2)
  1. TRAZENTA [Suspect]
     Active Substance: LINAGLIPTIN
     Indication: DIABETES MELLITUS
     Dosage: DOSE NOT REPORTED
     Route: 065
  2. TRAZENTA [Suspect]
     Active Substance: LINAGLIPTIN
     Dosage: DOSE NOT REPORTED
     Route: 065

REACTIONS (3)
  - Pemphigoid [Recovering/Resolving]
  - Urinary tract infection [Unknown]
  - Fungal infection [Unknown]
